FAERS Safety Report 20514074 (Version 1)
Quarter: 2022Q1

REPORT INFORMATION
  Report Type: Spontaneous
  Country: US (occurrence: US)
  Receive Date: 20220224
  Receipt Date: 20220224
  Transmission Date: 20220424
  Serious: No
  Sender: FDA-Public Use
  Company Number: US-AMNEAL PHARMACEUTICALS-2021-AMRX-03668

PATIENT
  Age: 75 Year
  Sex: Female

DRUGS (6)
  1. RYTARY [Suspect]
     Active Substance: CARBIDOPA\LEVODOPA
     Indication: Product used for unknown indication
     Dosage: 48.75/195MG, 2 CAPSULES AT 7:30AM, 1 CAPSULE AT 10AM AND 12:30PM, 3PM, 5:30PM, AND 8PM TAKE 1 CAP AT
     Route: 048
     Dates: start: 20210819, end: 2021
  2. RYTARY [Suspect]
     Active Substance: CARBIDOPA\LEVODOPA
     Dosage: 48.75/195MG, 2 CAPSULES, 7/DAY (8AM, 11AM, 2PM, 5PM, 8PM, 11PM, AND MIDDLE OF NIGHT)
     Route: 048
     Dates: end: 20210809
  3. RYTARY [Suspect]
     Active Substance: CARBIDOPA\LEVODOPA
     Dosage: 23.75/95MG, 1 CAPSULES, 5X/DAY
     Route: 048
     Dates: start: 20210810, end: 20210818
  4. RYTARY [Suspect]
     Active Substance: CARBIDOPA\LEVODOPA
     Dosage: 48.75/195MG, 1 CAPSULES, 5X/DAY
     Route: 048
     Dates: start: 20210810, end: 20210818
  5. RYTARY [Suspect]
     Active Substance: CARBIDOPA\LEVODOPA
     Dosage: 23.75/95 MG, 1 CAPSULE AT 12:30PM AND 3PM
     Route: 048
     Dates: start: 20210819, end: 2021
  6. RYTARY [Suspect]
     Active Substance: CARBIDOPA\LEVODOPA
     Dosage: 48.75/195MG 1 CAPSULE AT 7:30AM, 10AM, 12:30PM, 3PM, 5:30PM, AND 8PM. TAKE 1 CAP AT 11:30PM IF PATIE
     Route: 048
     Dates: start: 20210930

REACTIONS (5)
  - Ear discomfort [Unknown]
  - Oral pain [Unknown]
  - Toothache [Unknown]
  - Dyspnoea [Unknown]
  - Prescribed overdose [Unknown]

NARRATIVE: CASE EVENT DATE: 20210831
